FAERS Safety Report 4933564-X (Version None)
Quarter: 2006Q1

REPORT INFORMATION
  Report Type: 
  Country: None (occurrence: None)
  Receive Date: 20060117
  Receipt Date: 20051117
  Transmission Date: 20060701
  Serious: Yes (Other)
  Sender: FDA-Public Use
  Company Number: 2005139510

PATIENT
  Age: 76 Year
  Sex: Female
  Weight: 63.5036 kg

DRUGS (3)
  1. MACUGEN [Suspect]
     Indication: MACULAR DEGENERATION
     Dosage: (1 IN 1 D), INTRAVITREOUS
     Dates: start: 20050401
  2. SYNTHROID [Concomitant]
  3. BENAZEPRIL (BENAZEPRIL) [Concomitant]

REACTIONS (1)
  - VISION BLURRED [None]
